FAERS Safety Report 8014125-5 (Version None)
Quarter: 2011Q4

REPORT INFORMATION
  Report Type: 
  Country: None (occurrence: None)
  Receive Date: 20111229
  Receipt Date: 20111227
  Transmission Date: 20120403
  Serious: No
  Sender: FDA-Public Use
  Company Number: US-BAYER-2011-124178

PATIENT
  Age: 45 Year
  Sex: Female
  Weight: 82 kg

DRUGS (3)
  1. ANTIDEPRESSANTS [Concomitant]
  2. ALEVE (CAPLET) [Suspect]
     Indication: PAIN
     Dosage: 4 DF, ONCE
     Dates: start: 20111227, end: 20111227
  3. ANXIOLYTICS [Concomitant]

REACTIONS (1)
  - NO ADVERSE EVENT [None]
